FAERS Safety Report 12423653 (Version 1)
Quarter: 2016Q2

REPORT INFORMATION
  Report Type: Spontaneous
  Country: US (occurrence: None)
  Receive Date: 20160531
  Receipt Date: 20160531
  Transmission Date: 20160815
  Serious: Yes (Life-Threatening, Hospitalization, Disabling, Other)
  Sender: FDA-Public Use
  Company Number: None

PATIENT
  Age: 54 Year
  Sex: Female
  Weight: 104.33 kg

DRUGS (18)
  1. MAGNESIUM [Concomitant]
     Active Substance: MAGNESIUM
  2. SOFRAN [Concomitant]
  3. LEVAQUIN [Suspect]
     Active Substance: LEVOFLOXACIN
     Indication: EAR INFECTION
     Dosage: 10 TABLET(S) ONCE A DAY TAKEN BY MOUTH
     Route: 048
     Dates: start: 20151215, end: 20151220
  4. HYDROXYZINE [Concomitant]
     Active Substance: HYDROXYZINE\HYDROXYZINE HYDROCHLORIDE
  5. CALCIUM GLUCONATE. [Concomitant]
     Active Substance: CALCIUM GLUCONATE
  6. ADVAIR DISKUS [Concomitant]
     Active Substance: FLUTICASONE PROPIONATE\SALMETEROL XINAFOATE
  7. VITAMIN D2 [Concomitant]
     Active Substance: ERGOCALCIFEROL
  8. FLONASE [Concomitant]
     Active Substance: FLUTICASONE PROPIONATE
  9. SPIRONOLACTONE. [Concomitant]
     Active Substance: SPIRONOLACTONE
  10. PROTONIX [Concomitant]
     Active Substance: PANTOPRAZOLE SODIUM
  11. LEVAQUIN [Suspect]
     Active Substance: LEVOFLOXACIN
     Indication: SINUSITIS
     Dosage: 10 TABLET(S) ONCE A DAY TAKEN BY MOUTH
     Route: 048
     Dates: start: 20151215, end: 20151220
  12. ALBUTEROL. [Concomitant]
     Active Substance: ALBUTEROL
  13. IBUPROFEN. [Concomitant]
     Active Substance: IBUPROFEN
  14. PREMARIN [Concomitant]
     Active Substance: ESTROGENS, CONJUGATED
  15. LOSARTAN. [Concomitant]
     Active Substance: LOSARTAN
  16. MULTIVITAMIN [Concomitant]
     Active Substance: VITAMINS
  17. OXYGEN. [Concomitant]
     Active Substance: OXYGEN
  18. IBUPROFEN. [Concomitant]
     Active Substance: IBUPROFEN

REACTIONS (11)
  - Life support [None]
  - Vomiting [None]
  - Nausea [None]
  - Anxiety [None]
  - Cough [None]
  - Respiratory disorder [None]
  - Influenza [None]
  - Cardiac arrest [None]
  - Mobility decreased [None]
  - Tendon pain [None]
  - Memory impairment [None]

NARRATIVE: CASE EVENT DATE: 20151219
